FAERS Safety Report 14216386 (Version 1)
Quarter: 2017Q4

REPORT INFORMATION
  Report Type: Spontaneous
  Country: US (occurrence: US)
  Receive Date: 20171122
  Receipt Date: 20171122
  Transmission Date: 20180321
  Serious: No
  Sender: FDA-Public Use
  Company Number: US-ASTRAZENECA-2017SF08972

PATIENT
  Age: 31 Year
  Sex: Female
  Weight: 57.2 kg

DRUGS (2)
  1. SYMBICORT [Suspect]
     Active Substance: BUDESONIDE\FORMOTEROL FUMARATE DIHYDRATE
     Indication: ASTHMA
     Dosage: 160/4.5 MCG, 1 PUFF ONCE DAILY
     Route: 055
     Dates: start: 1971
  2. SYMBICORT [Suspect]
     Active Substance: BUDESONIDE\FORMOTEROL FUMARATE DIHYDRATE
     Indication: ASTHMA
     Dosage: 160/4.5 MCG, 2 PUFFS ONCE DAILY
     Route: 055

REACTIONS (14)
  - Fall [Unknown]
  - Pain in extremity [Unknown]
  - Peripheral swelling [Unknown]
  - Joint injury [Unknown]
  - Skin discolouration [Unknown]
  - Off label use [Unknown]
  - Pain [Unknown]
  - Memory impairment [Unknown]
  - Cough [Unknown]
  - Depression [Unknown]
  - Product use issue [Unknown]
  - Dyspnoea [Unknown]
  - Condition aggravated [Unknown]
  - Tendon rupture [Not Recovered/Not Resolved]

NARRATIVE: CASE EVENT DATE: 1971
